FAERS Safety Report 10218975 (Version 1)
Quarter: 2014Q2

REPORT INFORMATION
  Report Type: Spontaneous
  Country: US (occurrence: None)
  Receive Date: 20140604
  Receipt Date: 20140604
  Transmission Date: 20141212
  Serious: Yes (Life-Threatening, Disabling)
  Sender: FDA-Public Use
  Company Number: None

PATIENT
  Age: 64 Year
  Sex: Female
  Weight: 67.13 kg

DRUGS (2)
  1. SF 1.1 GEL [Suspect]
     Indication: DENTAL CARE
     Dosage: GEL APPLY, BRUSHING TO TEETH
     Dates: start: 20140601, end: 20140601
  2. SF 1.1 GEL [Suspect]
     Indication: PROPHYLAXIS
     Dosage: GEL APPLY, BRUSHING TO TEETH
     Dates: start: 20140601, end: 20140601

REACTIONS (9)
  - Increased upper airway secretion [None]
  - Rash [None]
  - Pruritus [None]
  - Lip swelling [None]
  - Pharyngeal oedema [None]
  - Malaise [None]
  - Asthenia [None]
  - Feeling abnormal [None]
  - Oral mucosal exfoliation [None]
